FAERS Safety Report 21458247 (Version 1)
Quarter: 2022Q4

REPORT INFORMATION
  Report Type: Report from Study
  Country: US (occurrence: US)
  Receive Date: 20221014
  Receipt Date: 20221014
  Transmission Date: 20230113
  Serious: No
  Sender: FDA-Public Use
  Company Number: US-BIOVITRUM-2022US10091

PATIENT
  Sex: Male

DRUGS (13)
  1. KINERET [Suspect]
     Active Substance: ANAKINRA
     Indication: Product used for unknown indication
     Dates: start: 20220812
  2. MITIGARE [Concomitant]
     Active Substance: COLCHICINE
  3. SILDENAFIL [Concomitant]
     Active Substance: SILDENAFIL
  4. TIZANIDINE [Concomitant]
     Active Substance: TIZANIDINE
  5. INDOMETHACIN [Concomitant]
     Active Substance: INDOMETHACIN
  6. PERCOCET [Concomitant]
     Active Substance: ACETAMINOPHEN\OXYCODONE HYDROCHLORIDE
  7. PREDNISONE [Concomitant]
     Active Substance: PREDNISONE
  8. BETAMETHASONE [Concomitant]
     Active Substance: BETAMETHASONE
  9. ALLOPURINOL [Concomitant]
     Active Substance: ALLOPURINOL
  10. ATORVASTATIN [Concomitant]
     Active Substance: ATORVASTATIN
  11. TAMSULOSIN [Concomitant]
     Active Substance: TAMSULOSIN
  12. CLOTRIMAZOLE [Concomitant]
     Active Substance: CLOTRIMAZOLE
  13. LEFLUNOMIDE [Concomitant]
     Active Substance: LEFLUNOMIDE

REACTIONS (4)
  - Arthralgia [Unknown]
  - Injection site pain [Unknown]
  - Injection site bruising [Unknown]
  - Intentional dose omission [Unknown]
